FAERS Safety Report 10222803 (Version 1)
Quarter: 2014Q2

REPORT INFORMATION
  Report Type: Spontaneous
  Country: US (occurrence: US)
  Receive Date: 20140606
  Receipt Date: 20140606
  Transmission Date: 20141212
  Serious: Yes (Hospitalization, Other)
  Sender: FDA-Public Use
  Company Number: US-RB-068247-14

PATIENT
  Age: 35 Year
  Sex: Female

DRUGS (1)
  1. SUBOXONE FILM [Suspect]
     Indication: PRODUCT USED FOR UNKNOWN INDICATION
     Dosage: SUBOXONE FILM; UNKNOWN DOSING DETAILS
     Route: 060

REACTIONS (2)
  - Appendicitis [Recovered/Resolved]
  - Pain [Not Recovered/Not Resolved]
